FAERS Safety Report 17890031 (Version 6)
Quarter: 2020Q3

REPORT INFORMATION
  Report Type: Report from Study
  Country: JP (occurrence: JP)
  Receive Date: 20200612
  Receipt Date: 20200922
  Transmission Date: 20201103
  Serious: Yes (Death, Hospitalization, Other)
  Sender: FDA-Public Use
  Company Number: JP-PFIZER INC-2019-06095

PATIENT
  Age: 75 Year
  Sex: Male
  Weight: 56 kg

DRUGS (14)
  1. OPDIVO [Suspect]
     Active Substance: NIVOLUMAB
     Dosage: 240 MG
     Route: 041
     Dates: start: 20191225, end: 20191225
  2. OPDIVO [Suspect]
     Active Substance: NIVOLUMAB
     Dosage: 240 MG (8 COURSES WERE PERFORMED IN TOTAL)
     Route: 041
     Dates: start: 20191016, end: 20191127
  3. LANSOPRAZOLE. [Suspect]
     Active Substance: LANSOPRAZOLE
     Indication: MENINGITIS
     Dosage: 15 MG
     Route: 048
     Dates: start: 20190521, end: 20191209
  4. ENCORAFENIB [Suspect]
     Active Substance: ENCORAFENIB
     Indication: MALIGNANT MELANOMA
     Dosage: (9 CAPSULES, 450 MG)
     Route: 048
     Dates: start: 20190611, end: 20190730
  5. ENCORAFENIB [Suspect]
     Active Substance: ENCORAFENIB
     Dosage: (6 CAPSULES, 300 MG)
     Route: 048
     Dates: start: 20190904, end: 20191001
  6. ENCORAFENIB [Suspect]
     Active Substance: ENCORAFENIB
     Dosage: 150 MG (REDUCED DOSE)
     Route: 048
     Dates: start: 20200123, end: 20200123
  7. BINIMETINIB [Suspect]
     Active Substance: BINIMETINIB
     Dosage: 30 MG (REDUCED DOSE)
     Route: 048
     Dates: start: 20200123, end: 20200123
  8. BIO?THREE [Concomitant]
     Active Substance: HERBALS
     Dosage: UNK
     Dates: start: 20190716
  9. BINIMETINIB [Suspect]
     Active Substance: BINIMETINIB
     Dosage: (4 TABLETS, 60 MG)
     Route: 048
     Dates: start: 20190904, end: 20191001
  10. NESINA [Concomitant]
     Active Substance: ALOGLIPTIN BENZOATE
     Dosage: UNK
  11. BINIMETINIB [Suspect]
     Active Substance: BINIMETINIB
     Indication: MALIGNANT MELANOMA
     Dosage: (6 TABLETS, 90 MG)
     Route: 048
     Dates: start: 20190611, end: 20190730
  12. OPDIVO [Suspect]
     Active Substance: NIVOLUMAB
     Indication: MALIGNANT MELANOMA
     Dosage: UNK (7 COURSES)
     Route: 041
     Dates: start: 20190116, end: 20190410
  13. TAKEPRON [Concomitant]
     Active Substance: LANSOPRAZOLE
     Dosage: UNK
     Dates: start: 20190510, end: 20190520
  14. AMLODIPINE [Concomitant]
     Active Substance: AMLODIPINE BESYLATE
     Dosage: UNK

REACTIONS (6)
  - Colitis microscopic [Recovered/Resolved]
  - Meningitis [Recovered/Resolved]
  - Diarrhoea [Recovered/Resolved]
  - Thalamus haemorrhage [Recovered/Resolved]
  - Diarrhoea [Recovered/Resolved]
  - Acarodermatitis [Recovered/Resolved]

NARRATIVE: CASE EVENT DATE: 20190427
